FAERS Safety Report 8553862 (Version 3)
Quarter: 2013Q1

REPORT INFORMATION
  Report Type: Report from Study
  Country: US (occurrence: US)
  Receive Date: 20120509
  Receipt Date: 20130321
  Transmission Date: 20140127
  Serious: Yes (Hospitalization)
  Sender: FDA-Public Use
  Company Number: US-ROCHE-1066409

PATIENT
  Age: 57 Year
  Sex: Female
  Weight: 72.11 kg

DRUGS (11)
  1. PEG-INTERFERON ALFA 2A [Suspect]
     Indication: CHRONIC HEPATITIS C
     Route: 058
     Dates: start: 20110707
  2. RIBAVIRIN [Suspect]
     Indication: CHRONIC HEPATITIS C
     Route: 048
     Dates: start: 20110707, end: 20120213
  3. RIBAVIRIN [Suspect]
     Route: 048
     Dates: start: 20120214, end: 20120214
  4. RIBAVIRIN [Suspect]
     Route: 048
     Dates: start: 20120216
  5. SYNTHROID [Concomitant]
     Route: 065
     Dates: start: 2001, end: 20120212
  6. ADVIL PM [Concomitant]
     Route: 065
     Dates: start: 20110710
  7. MOTRIN [Concomitant]
     Route: 065
     Dates: start: 20110710
  8. PHENERGAN [Concomitant]
     Route: 065
     Dates: start: 20110721
  9. LISINOPRIL [Concomitant]
     Route: 065
     Dates: start: 20111103, end: 20120212
  10. ALISPORIVIR [Suspect]
     Indication: CHRONIC HEPATITIS C
     Route: 048
     Dates: start: 20110707, end: 20120214
  11. ALISPORIVIR [Suspect]
     Route: 048
     Dates: start: 20120216

REACTIONS (2)
  - Cholelithiasis [Recovered/Resolved]
  - Cholecystitis [Recovered/Resolved]
